FAERS Safety Report 10592947 (Version 1)
Quarter: 2014Q4

REPORT INFORMATION
  Report Type: Spontaneous
  Country: US (occurrence: US)
  Receive Date: 20141119
  Receipt Date: 20141119
  Transmission Date: 20150529
  Serious: No
  Sender: FDA-Public Use
  Company Number: US-PFIZER INC-2014312819

PATIENT
  Age: 53 Year
  Sex: Female
  Weight: 58 kg

DRUGS (15)
  1. IBUPROFEN. [Suspect]
     Active Substance: IBUPROFEN
     Dosage: UNK
  2. METHOTREXATE [Concomitant]
     Active Substance: METHOTREXATE
     Dosage: 7.5 MG (THREE TABLETS OF 2.5MG) ONCE A WEEK
  3. TIZANIDINE (TIZANIDINE) [Concomitant]
     Active Substance: TIZANIDINE
     Dosage: 4 MG, TWICE DAILY
  4. BUPROPION [Concomitant]
     Active Substance: BUPROPION
     Dosage: 150 MG, TWICE DAILY
  5. FLONASE [Concomitant]
     Active Substance: FLUTICASONE PROPIONATE
     Dosage: 2 SPRAYS IN BOTH NOSTRILS, DAILY
     Route: 045
  6. ROBAXIN [Concomitant]
     Active Substance: METHOCARBAMOL
     Dosage: 750 MG, ONCE AT NIGHT
  7. LISINOPRIL. [Concomitant]
     Active Substance: LISINOPRIL
     Dosage: 10 MG, ONCE DAILY
     Route: 048
  8. ZOLPIDEM [Concomitant]
     Active Substance: ZOLPIDEM\ZOLPIDEM TARTRATE
     Dosage: 5 MG, IN THE EVENING
  9. PLAQUENIL [Concomitant]
     Active Substance: HYDROXYCHLOROQUINE SULFATE
     Dosage: 200 MG, TWICE PER DAY
     Route: 048
  10. RELAFEN [Suspect]
     Active Substance: NABUMETONE
     Indication: PAIN
     Dosage: UNK
  11. BUSPIRONE [Concomitant]
     Active Substance: BUSPIRONE HYDROCHLORIDE
     Dosage: 50 MG (10MG OF 3 TABLETS IN THE MORNING AND 2 IN THE EVENING)
  12. LIDODERM 5% PATCH [Concomitant]
     Dosage: 2 PATCHES, WITHIN 24 HOURS
  13. CARTIA XT [Concomitant]
     Active Substance: DILTIAZEM HYDROCHLORIDE
     Indication: PROPHYLAXIS
     Dosage: 240 MG, ONCE DAILY
  14. PROLIA [Concomitant]
     Active Substance: DENOSUMAB
     Dosage: 1 INJECTIION, EVERY 6 MONTHS
     Route: 058
  15. BUTALBITAL [Concomitant]
     Active Substance: BUTALBITAL
     Indication: HEADACHE
     Dosage: 1 OR 2 AT THE ONSET OF A HEADACHE AND 1 MORE IN 4 HOURS IF NECESSARY

REACTIONS (2)
  - Drug ineffective [Unknown]
  - Abdominal discomfort [Unknown]
